FAERS Safety Report 8678179 (Version 3)
Quarter: 2012Q4

REPORT INFORMATION
  Report Type: 
  Country: US (occurrence: US)
  Receive Date: 20120723
  Receipt Date: 20120903
  Transmission Date: 20130627
  Serious: Yes (Hospitalization, Other)
  Sender: FDA-Public Use
  Company Number: US-ELI_LILLY_AND_COMPANY-US201207002743

PATIENT
  Age: 83 Year
  Sex: Male

DRUGS (3)
  1. CYMBALTA [Suspect]
     Indication: DEPRESSION
     Dosage: 90 mg, UNK
     Dates: end: 201206
  2. WELLBUTRIN [Concomitant]
  3. ADDERALL [Concomitant]

REACTIONS (3)
  - Renal failure [Recovered/Resolved]
  - Knee arthroplasty [Recovered/Resolved]
  - Serotonin syndrome [Recovered/Resolved]
